FAERS Safety Report 16670161 (Version 1)
Quarter: 2019Q3

REPORT INFORMATION
  Report Type: Spontaneous
  Country: BR (occurrence: BR)
  Receive Date: 20190805
  Receipt Date: 20190805
  Transmission Date: 20191004
  Serious: Yes (Other)
  Sender: FDA-Public Use
  Company Number: BR-CELGENEUS-BRA-20190710191

PATIENT
  Sex: Female

DRUGS (1)
  1. VIDAZA [Suspect]
     Active Substance: AZACITIDINE
     Indication: MYELODYSPLASTIC SYNDROME
     Route: 065
     Dates: start: 20161001

REACTIONS (7)
  - Pneumonia [Unknown]
  - Diabetic metabolic decompensation [Unknown]
  - Haematoma [Unknown]
  - Feeding disorder [Unknown]
  - Application site haematoma [Unknown]
  - Application site nodule [Unknown]
  - Application site erythema [Unknown]
